FAERS Safety Report 8277427-3 (Version None)
Quarter: 2012Q2

REPORT INFORMATION
  Report Type: 
  Country: None (occurrence: None)
  Receive Date: 20120412
  Receipt Date: 20120404
  Transmission Date: 20120825
  Serious: Yes (Hospitalization, Other)
  Sender: FDA-Public Use
  Company Number: JP-PFIZER INC-2012081114

PATIENT
  Sex: Male

DRUGS (1)
  1. ZITHROMAX [Suspect]
     Indication: TONSILLITIS
     Dosage: UNK
     Route: 048
     Dates: start: 20010101

REACTIONS (7)
  - SCHIZOPHRENIA [None]
  - BACK PAIN [None]
  - VISUAL IMPAIRMENT [None]
  - DYSPNOEA [None]
  - OCULAR HYPERAEMIA [None]
  - TACHYCARDIA [None]
  - SUICIDE ATTEMPT [None]
